FAERS Safety Report 7623239-0 (Version None)
Quarter: 2011Q3

REPORT INFORMATION
  Report Type: 
  Country: None (occurrence: None)
  Receive Date: 20110720
  Receipt Date: 20110705
  Transmission Date: 20111222
  Serious: Yes (Hospitalization)
  Sender: FDA-Public Use
  Company Number: US-GENZYME-CAMP-1001750

PATIENT
  Age: 66 Year
  Sex: Female
  Weight: 115 kg

DRUGS (1)
  1. CAMPATH [Suspect]
     Indication: CHRONIC LYMPHOCYTIC LEUKAEMIA
     Dosage: 30 MG, QD
     Route: 058
     Dates: start: 20110214, end: 20110429

REACTIONS (3)
  - ENCEPHALITIS HERPES [None]
  - MENTAL STATUS CHANGES [None]
  - HERPES ZOSTER [None]
